FAERS Safety Report 9395615 (Version 5)
Quarter: 2013Q3

REPORT INFORMATION
  Report Type: Report from Study
  Country: CA (occurrence: CA)
  Receive Date: 20130711
  Receipt Date: 20130911
  Transmission Date: 20140515
  Serious: Yes (Other)
  Sender: FDA-Public Use
  Company Number: CA-BAYER-2013-083307

PATIENT
  Sex: Male
  Weight: 82.4 kg

DRUGS (3)
  1. REGORAFENIB [Suspect]
     Indication: GASTROINTESTINAL STROMAL TUMOUR
     Dosage: UNK
     Route: 048
     Dates: start: 20120526, end: 20130606
  2. PLACEBO (14874) [Suspect]
     Indication: GASTROINTESTINAL STROMAL TUMOUR
     Dosage: UNK
     Route: 048
  3. RAMIPRIL [Concomitant]
     Indication: HYPERTENSION

REACTIONS (1)
  - Retinal artery embolism [Unknown]
